FAERS Safety Report 17749837 (Version 1)
Quarter: 2020Q2

REPORT INFORMATION
  Report Type: Spontaneous
  Country: US (occurrence: US)
  Receive Date: 20200505
  Receipt Date: 20200505
  Transmission Date: 20200714
  Serious: Yes (Death)
  Sender: FDA-Public Use
  Company Number: None

PATIENT
  Sex: Female

DRUGS (41)
  1. KLOR-CON [Concomitant]
     Active Substance: POTASSIUM CHLORIDE
  2. LORAZEPAM. [Concomitant]
     Active Substance: LORAZEPAM
  3. NITRO-BID OIN [Concomitant]
  4. SEROQUEL [Concomitant]
     Active Substance: QUETIAPINE FUMARATE
  5. ABILIFY [Concomitant]
     Active Substance: ARIPIPRAZOLE
  6. BETAMETH DIP [Concomitant]
  7. DIGOX [Concomitant]
     Active Substance: DIGOXIN
  8. MELOXICAM. [Concomitant]
     Active Substance: MELOXICAM
  9. SINGULAIR [Concomitant]
     Active Substance: MONTELUKAST SODIUM
  10. NORDITROPIN [Suspect]
     Active Substance: SOMATROPIN
     Indication: HYPOPITUITARISM
     Route: 058
     Dates: start: 20160728
  11. ESZOPICLONE. [Concomitant]
     Active Substance: ESZOPICLONE
  12. ROPINIROLE. [Concomitant]
     Active Substance: ROPINIROLE
  13. SAVELLA [Concomitant]
     Active Substance: MILNACIPRAN HYDROCHLORIDE
  14. ARIPIPRAZOLE. [Concomitant]
     Active Substance: ARIPIPRAZOLE
  15. HYDROCO/APAP [Concomitant]
     Active Substance: ACETAMINOPHEN\HYDROCODONE
  16. HYDORXYCHLOR [Concomitant]
  17. ONDANSETRON [Concomitant]
     Active Substance: ONDANSETRON
  18. ORTHO CYCLEN [Concomitant]
     Active Substance: ETHINYL ESTRADIOL\NORGESTIMATE
  19. PANTOPRAZOLE [Concomitant]
     Active Substance: PANTOPRAZOLE
  20. PREDNISONE. [Concomitant]
     Active Substance: PREDNISONE
  21. SYNTHROID [Concomitant]
     Active Substance: LEVOTHYROXINE SODIUM
  22. A-HYDROCORT [Concomitant]
     Active Substance: HYDROCORTISONE SODIUM SUCCINATE
  23. HYDROMORPHON [Concomitant]
     Active Substance: HYDROMORPHONE
  24. LUNESTA [Concomitant]
     Active Substance: ESZOPICLONE
  25. NYSTOP [Concomitant]
     Active Substance: NYSTATIN
  26. PROMETH/COD [Concomitant]
  27. TRAZODONE [Concomitant]
     Active Substance: TRAZODONE HYDROCHLORIDE
  28. DICLOFENAC [Concomitant]
     Active Substance: DICLOFENAC
  29. FLUCONAZOLE. [Concomitant]
     Active Substance: FLUCONAZOLE
  30. LASIX [Concomitant]
     Active Substance: FUROSEMIDE
  31. METHADONE [Concomitant]
     Active Substance: METHADONE HYDROCHLORIDE
  32. NYSTATIN. [Concomitant]
     Active Substance: NYSTATIN
  33. SERTRALINE [Concomitant]
     Active Substance: SERTRALINE HYDROCHLORIDE
  34. TROKENDI XR [Concomitant]
     Active Substance: TOPIRAMATE
  35. BONIVA CARTIA XT [Concomitant]
  36. MIRTAZAPINE. [Concomitant]
     Active Substance: MIRTAZAPINE
  37. NORDITROPIN [Concomitant]
     Active Substance: SOMATROPIN
  38. CLONAZEP ODT [Concomitant]
  39. LEVOTHYROXIN [Concomitant]
     Active Substance: LEVOTHYROXINE
  40. MONTELUKAST [Concomitant]
     Active Substance: MONTELUKAST SODIUM
  41. TRINTELLIX [Concomitant]
     Active Substance: VORTIOXETINE HYDROBROMIDE

REACTIONS (1)
  - Death [None]
